FAERS Safety Report 19106252 (Version 1)
Quarter: 2021Q2

REPORT INFORMATION
  Report Type: Spontaneous
  Country: JP (occurrence: JP)
  Receive Date: 20210407
  Receipt Date: 20210407
  Transmission Date: 20210717
  Serious: Yes (Hospitalization, Other)
  Sender: FDA-Public Use
  Company Number: JP-ANIPHARMA-2021-JP-000155

PATIENT
  Sex: Female

DRUGS (1)
  1. CANDESARTAN CILEXETIL. [Suspect]
     Active Substance: CANDESARTAN CILEXETIL
     Indication: HYPERTENSION
     Dosage: UNKNOWN DOSE IN THE MORNING / DOSE TEXT: UNKNOWN DOSE BEFORE BEDTIME
     Route: 048

REACTIONS (4)
  - Blood triglycerides increased [Unknown]
  - Liver function test abnormal [Recovered/Resolved]
  - Blood pressure increased [Unknown]
  - Diverticulitis [Unknown]
